FAERS Safety Report 18652789 (Version 2)
Quarter: 2021Q1

REPORT INFORMATION
  Report Type: Report from Study
  Country: None (occurrence: NO)
  Receive Date: 20201223
  Receipt Date: 20210209
  Transmission Date: 20210419
  Serious: Yes (Hospitalization)
  Sender: FDA-Public Use
  Company Number: NO-ABBVIE-20K-122-3682744-00

PATIENT
  Age: 64 Year
  Sex: Female

DRUGS (3)
  1. DUODOPA [Suspect]
     Active Substance: CARBIDOPA\LEVODOPA
     Indication: PRODUCT USED FOR UNKNOWN INDICATION
     Route: 050
  2. PRAMIPEXOLE. [Concomitant]
     Active Substance: PRAMIPEXOLE
     Indication: PARKINSON^S DISEASE
  3. DUODOPA [Suspect]
     Active Substance: CARBIDOPA\LEVODOPA

REACTIONS (8)
  - Medical device site haemorrhage [Recovering/Resolving]
  - C-reactive protein increased [Unknown]
  - Post procedural pulmonary embolism [Unknown]
  - Intra-abdominal haemorrhage [Not Recovered/Not Resolved]
  - Infection [Not Recovered/Not Resolved]
  - Weight increased [Unknown]
  - Post procedural haematoma [Unknown]
  - Abscess [Unknown]

NARRATIVE: CASE EVENT DATE: 202012
